FAERS Safety Report 7907448-9 (Version None)
Quarter: 2011Q4

REPORT INFORMATION
  Report Type: 
  Country: None (occurrence: None)
  Receive Date: 20111109
  Receipt Date: 20111109
  Transmission Date: 20120403
  Serious: No
  Sender: FDA-Public Use
  Company Number: None

PATIENT
  Sex: Female

DRUGS (1)
  1. ENBREL [Suspect]
     Indication: POLYARTHRITIS
     Dosage: 50 MG QWEEK SQ
     Route: 058
     Dates: start: 20110921, end: 20111107

REACTIONS (2)
  - OEDEMA PERIPHERAL [None]
  - INJECTION SITE REACTION [None]
